FAERS Safety Report 7815206-9 (Version None)
Quarter: 2011Q4

REPORT INFORMATION
  Report Type: 
  Country: None (occurrence: None)
  Receive Date: 20111014
  Receipt Date: 20111005
  Transmission Date: 20120403
  Serious: Yes (Other)
  Sender: FDA-Public Use
  Company Number: NL-JNJFOC-20111002918

PATIENT
  Sex: Female

DRUGS (3)
  1. REMICADE [Suspect]
     Indication: MATERNAL EXPOSURE DURING PREGNANCY
     Route: 050
     Dates: start: 20100203
  2. REMICADE [Suspect]
     Route: 050
     Dates: start: 20100324
  3. REMICADE [Suspect]
     Route: 050
     Dates: start: 20091216

REACTIONS (1)
  - MATERNAL EXPOSURE DURING PREGNANCY [None]
